FAERS Safety Report 7042737-4 (Version None)
Quarter: 2010Q4

REPORT INFORMATION
  Report Type: 
  Country: None (occurrence: None)
  Receive Date: 20101013
  Receipt Date: 20100302
  Transmission Date: 20110411
  Serious: No
  Sender: FDA-Public Use
  Company Number: US-ASTRAZENECA-2010SE00247

PATIENT
  Age: 85 Year
  Sex: Female
  Weight: 72.6 kg

DRUGS (9)
  1. SYMBICORT [Suspect]
     Indication: ASTHMA
     Dosage: 80/4.5 MCG 1 PUFF TWO TIMES DAILY
     Route: 055
     Dates: start: 20091221
  2. SYNTHROID [Concomitant]
  3. LISINOPRIL [Concomitant]
  4. KLOR-CON [Concomitant]
  5. FUROSEMIDE [Concomitant]
  6. WARFARIN SODIUM [Concomitant]
  7. ALBUTEROL [Concomitant]
  8. XOPINEX [Concomitant]
  9. PRILOSEC [Concomitant]

REACTIONS (3)
  - ASTHENIA [None]
  - DIZZINESS [None]
  - DRUG INEFFECTIVE [None]
